FAERS Safety Report 8821254 (Version 1)
Quarter: 2012Q4

REPORT INFORMATION
  Report Type: Report from Study
  Country: IT (occurrence: IT)
  Receive Date: 20121002
  Receipt Date: 20121002
  Transmission Date: 20130627
  Serious: Yes (Hospitalization)
  Sender: FDA-Public Use
  Company Number: IT-ROCHE-1017398

PATIENT
  Age: 74 Year
  Sex: Female
  Weight: 72 kg

DRUGS (3)
  1. AVASTIN [Suspect]
     Indication: INFLAMMATORY CARCINOMA OF THE BREAST
     Dosage: Date of last dose prior to SAE: 18/Nov/2011
     Route: 042
     Dates: start: 20110916, end: 20111209
  2. CARBOPLATIN [Suspect]
     Indication: INFLAMMATORY CARCINOMA OF THE BREAST
     Dosage: TOTAL DOSE: 230 AUC 2; Date of last dose prior to SAE: 25/Nov/2011
     Route: 042
     Dates: start: 20110916
  3. PACLITAXEL [Suspect]
     Indication: INFLAMMATORY CARCINOMA OF THE BREAST
     Dosage: Date of last dose prior to SAE: 25/Nov/2011
     Route: 042
     Dates: start: 20110916

REACTIONS (1)
  - Atrial fibrillation [Recovered/Resolved]
